FAERS Safety Report 24435337 (Version 2)
Quarter: 2024Q4

REPORT INFORMATION
  Report Type: Spontaneous
  Country: US (occurrence: US)
  Receive Date: 20241015
  Receipt Date: 20241028
  Transmission Date: 20250114
  Serious: Yes (Hospitalization)
  Sender: AMGEN
  Company Number: US-AMGEN-USASP2024201381

PATIENT
  Sex: Female

DRUGS (3)
  1. AMJEVITA [Suspect]
     Active Substance: ADALIMUMAB-ATTO
     Indication: Behcet^s syndrome
     Dosage: UNK
     Route: 065
     Dates: start: 202310, end: 2024
  2. ENBREL [Suspect]
     Active Substance: ETANERCEPT
     Indication: Behcet^s syndrome
     Dosage: UNK
     Route: 065
  3. ENBREL [Suspect]
     Active Substance: ETANERCEPT
     Indication: Off label use

REACTIONS (2)
  - Behcet^s syndrome [Unknown]
  - Off label use [Unknown]

NARRATIVE: CASE EVENT DATE: 20231001
